FAERS Safety Report 15295821 (Version 1)
Quarter: 2018Q3

REPORT INFORMATION
  Report Type: Spontaneous
  Country: TN (occurrence: TN)
  Receive Date: 20180820
  Receipt Date: 20180820
  Transmission Date: 20181010
  Serious: Yes (Death, Hospitalization)
  Sender: FDA-Public Use
  Company Number: TN-MYLANLABS-2018M1061350

PATIENT
  Age: 60 Year
  Sex: Female

DRUGS (1)
  1. HEPARIN [Suspect]
     Active Substance: HEPARIN SODIUM
     Indication: DEEP VEIN THROMBOSIS
     Route: 041

REACTIONS (3)
  - Cerebral haemorrhage [Fatal]
  - Hydrocephalus [Fatal]
  - Mydriasis [Fatal]
